FAERS Safety Report 9642033 (Version 1)
Quarter: 2013Q4

REPORT INFORMATION
  Report Type: Spontaneous
  Country: US (occurrence: None)
  Receive Date: 20131022
  Receipt Date: 20131022
  Transmission Date: 20140711
  Serious: Yes (Death)
  Sender: FDA-Public Use
  Company Number: SYM-2013-11623

PATIENT
  Age: 85 Year
  Sex: Female

DRUGS (1)
  1. XENAZINER [Suspect]
     Indication: TARDIVE DYSKINESIA

REACTIONS (1)
  - Death [None]
